FAERS Safety Report 5829000-1 (Version None)
Quarter: 2008Q3

REPORT INFORMATION
  Report Type: 
  Country: None (occurrence: None)
  Receive Date: 20080731
  Receipt Date: 20080723
  Transmission Date: 20090109
  Serious: Yes (Hospitalization, Other)
  Sender: FDA-Public Use
  Company Number: PHFR2008GB01460

PATIENT
  Sex: Male

DRUGS (5)
  1. CLOZARIL [Suspect]
     Indication: SCHIZOPHRENIA
     Dosage: 500MG/DAY
     Route: 048
     Dates: start: 20080121
  2. OLANZAPINE [Concomitant]
     Route: 065
  3. LORAZEPAM [Concomitant]
     Indication: AGITATION
     Dosage: 1 MG, BID
     Route: 048
  4. LORAZEPAM [Concomitant]
     Indication: DEPENDENCE
  5. HYOSCINE [Concomitant]

REACTIONS (7)
  - DIZZINESS [None]
  - FATIGUE [None]
  - HYPOTENSION [None]
  - ORTHOSTATIC HYPOTENSION [None]
  - PALLOR [None]
  - SOMNOLENCE [None]
  - UNDERWEIGHT [None]
